FAERS Safety Report 6394943-X (Version None)
Quarter: 2009Q4

REPORT INFORMATION
  Report Type: 
  Country: None (occurrence: None)
  Receive Date: 20091009
  Receipt Date: 20090928
  Transmission Date: 20100525
  Serious: Yes (Other)
  Sender: FDA-Public Use
  Company Number: GB-PFIZER INC-2009275517

PATIENT

DRUGS (2)
  1. DOXORUBICIN HCL [Suspect]
     Dosage: UNK
     Dates: start: 20060801, end: 20061201
  2. CYCLOPHOSPHAMIDE [Suspect]
     Dosage: UNK

REACTIONS (1)
  - OSTEONECROSIS [None]
